FAERS Safety Report 8499788-2 (Version None)
Quarter: 2012Q3

REPORT INFORMATION
  Report Type: 
  Country: None (occurrence: None)
  Receive Date: 20120710
  Receipt Date: 20120629
  Transmission Date: 20120928
  Serious: Yes (Hospitalization, Other)
  Sender: FDA-Public Use
  Company Number: US-NOVOPROD-354916

PATIENT
  Age: 85 Year
  Sex: Female
  Weight: 79.365 kg

DRUGS (1)
  1. LEVEMIR [Suspect]
     Indication: TYPE 2 DIABETES MELLITUS
     Dosage: 43 U, QD
     Route: 058
     Dates: start: 20100101

REACTIONS (3)
  - SPINAL COLUMN STENOSIS [None]
  - BLOOD GLUCOSE DECREASED [None]
  - URINARY TRACT INFECTION [None]
